FAERS Safety Report 16610159 (Version 1)
Quarter: 2019Q3

REPORT INFORMATION
  Report Type: Spontaneous
  Country: JP (occurrence: JP)
  Receive Date: 20190722
  Receipt Date: 20190722
  Transmission Date: 20191004
  Serious: Yes (Other)
  Sender: FDA-Public Use
  Company Number: JP-JNJFOC-20190714345

PATIENT
  Age: 8 Decade
  Sex: Male

DRUGS (1)
  1. RIVAROXABAN [Suspect]
     Active Substance: RIVAROXABAN
     Indication: PRODUCT USED FOR UNKNOWN INDICATION
     Dosage: XARELTO 15 MG
     Route: 048

REACTIONS (3)
  - Arrhythmia [Unknown]
  - Epistaxis [Not Recovered/Not Resolved]
  - Catheter placement [Unknown]

NARRATIVE: CASE EVENT DATE: 2019
